FAERS Safety Report 5368583-5 (Version None)
Quarter: 2007Q2

REPORT INFORMATION
  Report Type: 
  Country: None (occurrence: None)
  Receive Date: 20070621
  Receipt Date: 20070605
  Transmission Date: 20071010
  Serious: Yes (Other)
  Sender: FDA-Public Use
  Company Number: 2007323284

PATIENT
  Sex: Male

DRUGS (1)
  1. BENADRYL (DIPHENHYDRAMINE) [Suspect]
     Dosage: ORAL
     Route: 048
     Dates: start: 20010101, end: 20070526

REACTIONS (5)
  - DEPENDENCE [None]
  - HEADACHE [None]
  - OVERDOSE [None]
  - PAIN IN EXTREMITY [None]
  - STOMACH DISCOMFORT [None]
